FAERS Safety Report 5235772-X (Version None)
Quarter: 2007Q1

REPORT INFORMATION
  Report Type: 
  Country: None (occurrence: None)
  Receive Date: 20070212
  Receipt Date: 20070205
  Transmission Date: 20070707
  Serious: Yes (Hospitalization)
  Sender: FDA-Public Use
  Company Number: ES-AVENTIS-200710628EU

PATIENT
  Age: 75 Year
  Sex: Male

DRUGS (5)
  1. SEGURIL                            /00032601/ [Suspect]
     Indication: OEDEMA
     Route: 048
     Dates: end: 20060928
  2. RENITEC                            /00574901/ [Suspect]
     Indication: ESSENTIAL HYPERTENSION
     Route: 048
     Dates: end: 20060928
  3. NOVONORM [Concomitant]
     Indication: DIABETES MELLITUS
     Dosage: DOSE: UNKNOWN DOSAGE
     Route: 048
     Dates: end: 20060928
  4. METFORMINA [Concomitant]
     Indication: DIABETES MELLITUS
     Route: 048
     Dates: end: 20060928
  5. SIMVASTATINA [Concomitant]
     Indication: HYPERLIPIDAEMIA
     Route: 048
     Dates: end: 20060928

REACTIONS (2)
  - DIALYSIS [None]
  - RENAL FAILURE ACUTE [None]
